FAERS Safety Report 5945103-5 (Version None)
Quarter: 2008Q4

REPORT INFORMATION
  Report Type: 
  Country: None (occurrence: None)
  Receive Date: 20081107
  Receipt Date: 20081104
  Transmission Date: 20090506
  Serious: Yes (Other)
  Sender: FDA-Public Use
  Company Number: A0571127A

PATIENT
  Sex: Female

DRUGS (3)
  1. PAXIL [Suspect]
     Indication: ANXIETY
     Route: 048
  2. PAROXETINE HCL [Suspect]
     Indication: ANXIETY DISORDER
     Dosage: 20MG PER DAY
     Route: 048
     Dates: start: 20000101
  3. ANTI-CHOLESTEROL MEDICATION [Concomitant]

REACTIONS (9)
  - AGITATION [None]
  - CRYING [None]
  - DEPRESSION [None]
  - DISABILITY [None]
  - EATING DISORDER [None]
  - INSOMNIA [None]
  - MOOD ALTERED [None]
  - SUICIDAL IDEATION [None]
  - WITHDRAWAL SYNDROME [None]
